FAERS Safety Report 7542235-5 (Version None)
Quarter: 2011Q2

REPORT INFORMATION
  Report Type: 
  Country: None (occurrence: None)
  Receive Date: 20110613
  Receipt Date: 20110608
  Transmission Date: 20111010
  Serious: Yes (Hospitalization, Congenital Anomaly, Other)
  Sender: FDA-Public Use
  Company Number: DE-PFIZER INC-2011124418

PATIENT
  Sex: Male
  Weight: 2.6 kg

DRUGS (6)
  1. LYRICA [Suspect]
     Dosage: 550 MG, DAILY
     Route: 064
     Dates: start: 20090328, end: 20090612
  2. NOVALGIN [Suspect]
     Dosage: 2250 MG, DAILY
     Route: 064
  3. FEMIBION [Concomitant]
     Dosage: 0.4 MG, DAILY
     Route: 064
  4. OMEPRAZOLE [Suspect]
     Dosage: 40 MG, DAILY
     Route: 064
  5. HUMINSULIN NORMAL [Concomitant]
     Dosage: UNK
     Route: 064
     Dates: end: 20091218
  6. FLUOXETINE [Suspect]
     Dosage: 40 MG, DAILY
     Route: 064
     Dates: start: 20090328, end: 20090612

REACTIONS (7)
  - ATRIAL SEPTAL DEFECT [None]
  - DRUG EXPOSURE DURING PREGNANCY [None]
  - CONGENITAL AORTIC VALVE STENOSIS [None]
  - CONGENITAL AORTIC VALVE INCOMPETENCE [None]
  - SMALL FOR DATES BABY [None]
  - CYANOSIS NEONATAL [None]
  - MATERNAL DRUGS AFFECTING FOETUS [None]
